FAERS Safety Report 18055032 (Version 3)
Quarter: 2020Q3

REPORT INFORMATION
  Report Type: Spontaneous
  Country: CN (occurrence: CN)
  Receive Date: 20200722
  Receipt Date: 20200810
  Transmission Date: 20201103
  Serious: Yes (Death, Life-Threatening, Hospitalization, Other)
  Sender: FDA-Public Use
  Company Number: CN-ASTRAZENECA-2020SE90777

PATIENT
  Age: 61 Year
  Sex: Male

DRUGS (2)
  1. CHEMOTHERAPY DRUGS [Concomitant]
     Active Substance: UNSPECIFIED INGREDIENT
  2. IMFINZI [Suspect]
     Active Substance: DURVALUMAB
     Indication: SMALL CELL LUNG CANCER
     Dosage: THE DOSE WAS 20MG / KG, AND THE PATIENT USED 2 BRANCHES OF 500MG, TOTALLY 1000MG IMFINZI.
     Route: 042
     Dates: start: 20200703

REACTIONS (19)
  - Cardiac arrest [Unknown]
  - General physical health deterioration [Unknown]
  - Mydriasis [Unknown]
  - Multiple organ dysfunction syndrome [Unknown]
  - Myelosuppression [Unknown]
  - Respiratory alkalosis [Unknown]
  - Dry skin [Unknown]
  - Dyspnoea [Unknown]
  - Diarrhoea [Unknown]
  - Confusional state [Unknown]
  - Hypovolaemic shock [Unknown]
  - Pyrexia [Unknown]
  - Hypoglycaemia [Unknown]
  - Death [Fatal]
  - Septic shock [Unknown]
  - Metabolic acidosis [Unknown]
  - Hypotension [Unknown]
  - Hyperkalaemia [Unknown]
  - Cyanosis [Unknown]

NARRATIVE: CASE EVENT DATE: 20200717
